FAERS Safety Report 19040013 (Version 2)
Quarter: 2025Q2

REPORT INFORMATION
  Report Type: Report from Study
  Country: IT (occurrence: IT)
  Receive Date: 20210323
  Receipt Date: 20250427
  Transmission Date: 20250716
  Serious: Yes (Other)
  Sender: AUROBINDO
  Company Number: IT-VIIV HEALTHCARE LIMITED-IT2021GSK058522

PATIENT
  Age: 39 Year
  Sex: Male

DRUGS (13)
  1. LAMIVUDINE [Suspect]
     Active Substance: LAMIVUDINE
     Indication: HIV infection
     Route: 065
  2. LAMIVUDINE [Suspect]
     Active Substance: LAMIVUDINE
     Route: 065
  3. LAMIVUDINE [Suspect]
     Active Substance: LAMIVUDINE
     Route: 065
  4. TENOFOVIR DISOPROXIL [Suspect]
     Active Substance: TENOFOVIR DISOPROXIL
     Indication: HIV infection
     Route: 065
  5. ABACAVIR [Suspect]
     Active Substance: ABACAVIR
     Indication: HIV infection
     Route: 065
  6. DARUNAVIR\RITONAVIR [Suspect]
     Active Substance: DARUNAVIR\RITONAVIR
     Indication: HIV infection
     Dosage: UNK UNK, ONCE A DAY
     Route: 065
  7. DARUNAVIR\RITONAVIR [Suspect]
     Active Substance: DARUNAVIR\RITONAVIR
     Dosage: UNK UNK, ONCE A DAY (BID)
     Route: 065
  8. DARUNAVIR\RITONAVIR [Suspect]
     Active Substance: DARUNAVIR\RITONAVIR
     Dosage: UNK UNK, ONCE A DAY ( BID)
     Route: 065
  9. EMTRICITABINE [Suspect]
     Active Substance: EMTRICITABINE
     Indication: HIV infection
     Route: 065
  10. ZIDOVUDINE [Concomitant]
     Active Substance: ZIDOVUDINE
     Indication: HIV infection
     Route: 065
  11. ZIDOVUDINE [Concomitant]
     Active Substance: ZIDOVUDINE
     Route: 065
  12. MARAVIROC [Concomitant]
     Active Substance: MARAVIROC
     Indication: HIV infection
     Route: 065
  13. RALTEGRAVIR [Concomitant]
     Active Substance: RALTEGRAVIR
     Indication: HIV infection
     Route: 065

REACTIONS (13)
  - Brain oedema [Recovered/Resolved]
  - Pathogen resistance [Unknown]
  - CSF HIV escape syndrome [Recovered/Resolved]
  - Disease recurrence [Recovered/Resolved]
  - Atrophy [Recovered/Resolved]
  - Nervous system disorder [Recovered/Resolved]
  - Headache [Recovered/Resolved]
  - Viral mutation identified [Unknown]
  - Cognitive disorder [Recovered/Resolved]
  - Cerebral disorder [Recovered/Resolved]
  - Peripheral venous disease [Recovered/Resolved]
  - White matter lesion [Recovered/Resolved]
  - Virologic failure [Recovered/Resolved]
